FAERS Safety Report 21355436 (Version 1)
Quarter: 2022Q3

REPORT INFORMATION
  Report Type: Spontaneous
  Country: DE (occurrence: DE)
  Receive Date: 20220920
  Receipt Date: 20220920
  Transmission Date: 20221027
  Serious: Yes (Hospitalization)
  Sender: FDA-Public Use
  Company Number: None

PATIENT
  Age: 36 Year
  Sex: Female
  Weight: 104 kg

DRUGS (2)
  1. EDOXABAN TOSYLATE [Suspect]
     Active Substance: EDOXABAN TOSYLATE
     Indication: Product used for unknown indication
     Dosage: 60 MG, QD (60 MG, 0-0-1-0)
     Route: 048
  2. ZINK [ZINC SULFATE] [Concomitant]
     Indication: Product used for unknown indication
     Dosage: TABLETS
     Route: 048

REACTIONS (6)
  - Feeling cold [Unknown]
  - Dyspnoea [Unknown]
  - Dyspnoea exertional [Unknown]
  - Hypotonia [Unknown]
  - Fatigue [Unknown]
  - Iron deficiency anaemia [Unknown]
